FAERS Safety Report 14794746 (Version 2)
Quarter: 2018Q2

REPORT INFORMATION
  Report Type: Spontaneous
  Country: US (occurrence: US)
  Receive Date: 20180423
  Receipt Date: 20180521
  Transmission Date: 20180711
  Serious: Yes (Other)
  Sender: FDA-Public Use
  Company Number: US-ASTELLAS-2018US019115

PATIENT
  Age: 4 Year
  Sex: Female

DRUGS (3)
  1. PREDNISONE. [Concomitant]
     Active Substance: PREDNISONE
     Indication: RENAL TRANSPLANT
     Dosage: UNK UNK, UNKNOWN FREQ.
     Route: 065
  2. MYCOPHENOLATE MOFETIL. [Concomitant]
     Active Substance: MYCOPHENOLATE MOFETIL
     Indication: RENAL TRANSPLANT
     Dosage: UNK UNK, UNKNOWN FREQ.
     Route: 065
  3. TACROLIMUS. [Suspect]
     Active Substance: TACROLIMUS
     Indication: RENAL TRANSPLANT
     Dosage: UNK UNK, UNKNOWN FREQ.
     Route: 065

REACTIONS (10)
  - Urine output decreased [Recovered/Resolved]
  - Feeding intolerance [Recovered/Resolved]
  - Abdominal distension [Recovered/Resolved]
  - Nephrotic syndrome [Recovered/Resolved]
  - Ascites [Recovered/Resolved]
  - Blood creatinine increased [Recovered/Resolved]
  - Complications of transplanted kidney [Recovered/Resolved]
  - Abdominal tenderness [Recovered/Resolved]
  - Gastrooesophageal reflux disease [Recovered/Resolved]
  - Pancreatitis acute [Recovered/Resolved]
